FAERS Safety Report 11749895 (Version 1)
Quarter: 2015Q4

REPORT INFORMATION
  Report Type: Spontaneous
  Country: US (occurrence: US)
  Receive Date: 20151118
  Receipt Date: 20151118
  Transmission Date: 20160304
  Serious: Yes (Other)
  Sender: FDA-Public Use
  Company Number: US-BAYER-2015-469831

PATIENT
  Age: 24 Year
  Sex: Male
  Weight: 90.7 kg

DRUGS (1)
  1. MIRALAX [Suspect]
     Active Substance: POLYETHYLENE GLYCOL 3350
     Indication: GASTROINTESTINAL MOTILITY DISORDER
     Dosage: 1 DF, BID
     Route: 048
     Dates: start: 2005

REACTIONS (2)
  - Nervous system disorder [Not Recovered/Not Resolved]
  - Product use issue [None]
